FAERS Safety Report 8336411-1 (Version None)
Quarter: 2012Q2

REPORT INFORMATION
  Report Type: 
  Country: None (occurrence: None)
  Receive Date: 20120504
  Receipt Date: 20120502
  Transmission Date: 20120825
  Serious: Yes (Hospitalization)
  Sender: FDA-Public Use
  Company Number: PHHY2012CH033018

PATIENT
  Sex: Male

DRUGS (1)
  1. VOLTAREN [Suspect]
     Dosage: UNK UKN, UNK
     Dates: start: 20120405

REACTIONS (3)
  - FALL [None]
  - UPPER LIMB FRACTURE [None]
  - SYNCOPE [None]
